FAERS Safety Report 25065217 (Version 1)
Quarter: 2025Q1

REPORT INFORMATION
  Report Type: Spontaneous
  Country: HR (occurrence: HR)
  Receive Date: 20250311
  Receipt Date: 20250311
  Transmission Date: 20250409
  Serious: Yes (Hospitalization, Other)
  Sender: NOVARTIS
  Company Number: HR-002147023-NVSC2025HR038505

PATIENT
  Age: 60 Year
  Sex: Male

DRUGS (2)
  1. KYMRIAH [Suspect]
     Active Substance: TISAGENLECLEUCEL
     Indication: Diffuse large B-cell lymphoma
     Route: 042
     Dates: start: 20231003, end: 20231003
  2. Globulin [Concomitant]
     Indication: Product used for unknown indication
     Route: 065
     Dates: start: 202412

REACTIONS (4)
  - Cytokine release syndrome [Unknown]
  - Pyrexia [Recovered/Resolved]
  - Hypotension [Unknown]
  - Confusional state [Unknown]

NARRATIVE: CASE EVENT DATE: 20230101
